FAERS Safety Report 6515922-5 (Version None)
Quarter: 2009Q4

REPORT INFORMATION
  Report Type: 
  Country: None (occurrence: None)
  Receive Date: 20091223
  Receipt Date: 20090126
  Transmission Date: 20100525
  Serious: No
  Sender: FDA-Public Use
  Company Number: US-ABBOTT-09P-163-0499939-00

PATIENT
  Sex: Male
  Weight: 83.082 kg

DRUGS (6)
  1. LUPRON DEPOT [Suspect]
     Indication: PROSTATE CANCER
     Route: 030
     Dates: start: 19990101
  2. HUMIRA [Concomitant]
     Indication: RHEUMATOID ARTHRITIS
     Route: 058
     Dates: start: 20040101
  3. SIMVASTATIN [Concomitant]
     Indication: BLOOD CHOLESTEROL INCREASED
     Dosage: UNKNOWN
  4. PRILOSEC OTC [Concomitant]
     Indication: GASTROOESOPHAGEAL REFLUX DISEASE
     Dosage: UNKNOWN
  5. CLOSAPAM [Concomitant]
     Indication: INSOMNIA
     Dosage: UNKNOWN, AT NIGHT
  6. CASODEX [Concomitant]
     Indication: PROSTATE CANCER
     Dosage: UNKNOWN

REACTIONS (1)
  - PROSTATIC SPECIFIC ANTIGEN INCREASED [None]
